FAERS Safety Report 6992008-7 (Version None)
Quarter: 2010Q3

REPORT INFORMATION
  Report Type: 
  Country: None (occurrence: None)
  Receive Date: 20100917
  Receipt Date: 20100910
  Transmission Date: 20110219
  Serious: Yes (Hospitalization, Other)
  Sender: FDA-Public Use
  Company Number: US-PFIZER INC-2010114811

PATIENT
  Sex: Female

DRUGS (2)
  1. LIPITOR [Suspect]
     Indication: BLOOD CHOLESTEROL INCREASED
     Dosage: 20 MG, 1X/DAY, AT NIGHT
     Route: 048
     Dates: start: 20100401
  2. LIPITOR [Suspect]
     Dosage: 40 MG, 1X/DAY

REACTIONS (5)
  - ABDOMINAL DISCOMFORT [None]
  - ARTHRALGIA [None]
  - BLOOD PRESSURE DECREASED [None]
  - COLITIS ISCHAEMIC [None]
  - MUSCLE SPASMS [None]
